FAERS Safety Report 14666540 (Version 3)
Quarter: 2025Q1

REPORT INFORMATION
  Report Type: Spontaneous
  Country: AU (occurrence: AU)
  Receive Date: 20180321
  Receipt Date: 20250109
  Transmission Date: 20250409
  Serious: Yes (Other)
  Sender: MERCK
  Company Number: AU-009507513-1803AUS008826

PATIENT

DRUGS (1)
  1. PEMBROLIZUMAB [Suspect]
     Active Substance: PEMBROLIZUMAB
     Indication: Malignant melanoma

REACTIONS (4)
  - Immune-mediated adverse reaction [Not Recovered/Not Resolved]
  - Juvenile idiopathic arthritis [Not Recovered/Not Resolved]
  - Systemic scleroderma [Not Recovered/Not Resolved]
  - Malignant neoplasm progression [Unknown]
